FAERS Safety Report 6173454-0 (Version None)
Quarter: 2009Q2

REPORT INFORMATION
  Report Type: 
  Country: None (occurrence: None)
  Receive Date: 20090430
  Receipt Date: 20090421
  Transmission Date: 20091009
  Serious: Yes (Hospitalization)
  Sender: FDA-Public Use
  Company Number: SE-WATSON-2009-02888

PATIENT
  Age: 21 Year
  Sex: Male

DRUGS (1)
  1. MONODOX [Suspect]
     Indication: URETHRITIS CHLAMYDIAL
     Dosage: 200 MG, DAILY X 2 WEEKS
     Route: 048
     Dates: start: 19850101, end: 19850101

REACTIONS (4)
  - ASTHENIA [None]
  - CHOLESTASIS [None]
  - JAUNDICE [None]
  - PRURITUS [None]
